FAERS Safety Report 13851515 (Version 1)
Quarter: 2017Q3

REPORT INFORMATION
  Report Type: Report from Study
  Country: None (occurrence: US)
  Receive Date: 20170810
  Receipt Date: 20170810
  Transmission Date: 20171127
  Serious: Yes (Hospitalization, Other)
  Sender: FDA-Public Use
  Company Number: US-ABBVIE-17K-163-1960093-00

PATIENT
  Sex: Female

DRUGS (1)
  1. HUMIRA [Suspect]
     Active Substance: ADALIMUMAB
     Indication: CROHN^S DISEASE
     Route: 058
     Dates: start: 2016, end: 2017

REACTIONS (7)
  - Drug abuse [Unknown]
  - Treatment noncompliance [Not Recovered/Not Resolved]
  - Transient ischaemic attack [Recovered/Resolved]
  - Sepsis [Recovering/Resolving]
  - Endocarditis [Not Recovered/Not Resolved]
  - Drug abuse [Recovered/Resolved]
  - Cerebral haemorrhage [Recovering/Resolving]

NARRATIVE: CASE EVENT DATE: 2017
